FAERS Safety Report 16845626 (Version 4)
Quarter: 2024Q1

REPORT INFORMATION
  Report Type: Spontaneous
  Country: US (occurrence: US)
  Receive Date: 20190924
  Receipt Date: 20240209
  Transmission Date: 20240409
  Serious: Yes (Other)
  Sender: FDA-Public Use
  Company Number: US-GILEAD-2019-0429615

PATIENT
  Age: 41 Year
  Sex: Male
  Weight: 68.027 kg

DRUGS (39)
  1. VIREAD [Suspect]
     Active Substance: TENOFOVIR DISOPROXIL FUMARATE
     Indication: HIV infection
     Dosage: UNK
     Route: 048
     Dates: start: 2001, end: 2017
  2. VIREAD [Suspect]
     Active Substance: TENOFOVIR DISOPROXIL FUMARATE
     Dosage: UNK
     Route: 048
     Dates: start: 2001, end: 201706
  3. TRUVADA [Suspect]
     Active Substance: EMTRICITABINE\TENOFOVIR DISOPROXIL FUMARATE
     Indication: HIV infection
     Dosage: UNK
     Route: 048
     Dates: start: 2001, end: 2017
  4. COMBIVIR [Concomitant]
     Active Substance: LAMIVUDINE\ZIDOVUDINE
  5. DESCOVY [Concomitant]
     Active Substance: EMTRICITABINE\TENOFOVIR ALAFENAMIDE FUMARATE
  6. EDURANT [Concomitant]
     Active Substance: RILPIVIRINE HYDROCHLORIDE
  7. EMTRIVA [Concomitant]
     Active Substance: EMTRICITABINE
  8. ISENTRESS [Concomitant]
     Active Substance: RALTEGRAVIR POTASSIUM
  9. JULUCA [Concomitant]
     Active Substance: DOLUTEGRAVIR SODIUM\RILPIVIRINE HYDROCHLORIDE
  10. NORVIR [Concomitant]
     Active Substance: RITONAVIR
  11. SUSTIVA [Concomitant]
     Active Substance: EFAVIRENZ
  12. TIVICAY [Concomitant]
     Active Substance: DOLUTEGRAVIR SODIUM
  13. ACETAMINOPHEN [Concomitant]
     Active Substance: ACETAMINOPHEN
  14. AMOXICILLIN [Concomitant]
     Active Substance: AMOXICILLIN
  15. ASPIRIN [Concomitant]
     Active Substance: ASPIRIN
  16. AZITHROMYCIN [Concomitant]
     Active Substance: AZITHROMYCIN
  17. ATOVAQUONE [Concomitant]
     Active Substance: ATOVAQUONE
  18. CARVEDILOL [Concomitant]
     Active Substance: CARVEDILOL
  19. NIFEDIPINE [Concomitant]
     Active Substance: NIFEDIPINE
  20. AMLODIPINE [Concomitant]
     Active Substance: AMLODIPINE BESYLATE
  21. BESIVANCE [Concomitant]
     Active Substance: BESIFLOXACIN
  22. CALCIUM ACETATE [Concomitant]
     Active Substance: CALCIUM ACETATE
  23. CEPHALEXIN [Concomitant]
     Active Substance: CEPHALEXIN
  24. CLINDAMYCIN [Concomitant]
     Active Substance: CLINDAMYCIN
  25. CRESTOR [Concomitant]
     Active Substance: ROSUVASTATIN CALCIUM
  26. FEXOFENADINE [Concomitant]
     Active Substance: FEXOFENADINE HYDROCHLORIDE
  27. HYDROCODONE [Concomitant]
     Active Substance: HYDROCODONE
  28. KETOCONAZOLE [Concomitant]
     Active Substance: KETOCONAZOLE
  29. LEVOFLACIN [Concomitant]
  30. MYFORTIC [Concomitant]
     Active Substance: MYCOPHENOLATE SODIUM
  31. PROGRAF [Concomitant]
     Active Substance: TACROLIMUS
  32. PEPCID [Concomitant]
     Active Substance: FAMOTIDINE
  33. MEPRON [Concomitant]
     Active Substance: ATOVAQUONE
  34. SULFAMETHOXAZOLE\TRIMETHOPRIM [Concomitant]
     Active Substance: SULFAMETHOXAZOLE\TRIMETHOPRIM
  35. VELTASSA [Concomitant]
     Active Substance: PATIROMER
  36. TACROLIMUS [Concomitant]
     Active Substance: TACROLIMUS
  37. ACETAMINOPHEN\HYDROCODONE [Concomitant]
     Active Substance: ACETAMINOPHEN\HYDROCODONE
  38. NATAMYCIN [Concomitant]
     Active Substance: NATAMYCIN
  39. FLUOROMETHOLONE [Concomitant]
     Active Substance: FLUOROMETHOLONE

REACTIONS (12)
  - Renal transplant [Unknown]
  - Renal failure [Unknown]
  - Chronic kidney disease [Not Recovered/Not Resolved]
  - Acute kidney injury [Not Recovered/Not Resolved]
  - Quality of life decreased [Not Recovered/Not Resolved]
  - Economic problem [Not Recovered/Not Resolved]
  - Anhedonia [Not Recovered/Not Resolved]
  - Emotional distress [Not Recovered/Not Resolved]
  - Anxiety [Not Recovered/Not Resolved]
  - Pain [Not Recovered/Not Resolved]
  - Gait disturbance [Unknown]
  - Fatigue [Unknown]

NARRATIVE: CASE EVENT DATE: 20040401
